FAERS Safety Report 4883879-9 (Version None)
Quarter: 2006Q1

REPORT INFORMATION
  Report Type: 
  Country: None (occurrence: None)
  Receive Date: 20060113
  Receipt Date: 20050826
  Transmission Date: 20060701
  Serious: Yes (Hospitalization)
  Sender: FDA-Public Use
  Company Number: 2005BI014727

PATIENT
  Age: 48 Year
  Sex: Male

DRUGS (2)
  1. AVONEX [Suspect]
     Indication: MULTIPLE SCLEROSIS
     Dosage: 30 UG; QW; IM
     Route: 030
     Dates: start: 19980101
  2. IV STEROIDS [Concomitant]

REACTIONS (3)
  - FALL [None]
  - PULMONARY EMBOLISM [None]
  - THROMBOSIS [None]
